FAERS Safety Report 16119558 (Version 1)
Quarter: 2019Q1

REPORT INFORMATION
  Report Type: Spontaneous
  Country: JP (occurrence: JP)
  Receive Date: 20190326
  Receipt Date: 20190326
  Transmission Date: 20190418
  Serious: Yes (Death, Hospitalization)
  Sender: FDA-Public Use
  Company Number: JP-AMNEAL PHARMACEUTICALS COMPANY GMBH-2019AGH00031

PATIENT
  Sex: Male
  Weight: 3.78 kg

DRUGS (5)
  1. ACYCLOVIR. [Suspect]
     Active Substance: ACYCLOVIR
     Dosage: 30 MG/KG EVERY 8 HOURS
     Route: 042
  2. FOSCARNET [Suspect]
     Active Substance: FOSCARNET
     Indication: ANTIVIRAL TREATMENT
     Dosage: UNK
     Route: 042
  3. METHYLPREDNISOLONE SODIUM SUCCINATE. [Suspect]
     Active Substance: METHYLPREDNISOLONE SODIUM SUCCINATE
     Indication: STEROID THERAPY
     Dosage: 30 MG/KG/DAY FOR 3 DAYS
     Route: 065
  4. ACYCLOVIR. [Suspect]
     Active Substance: ACYCLOVIR
     Indication: HERPES SIMPLEX
     Dosage: 20 MG/KG EVERY 8 HOURS
     Route: 042
  5. LIPO-DEXAMETHASONE [Suspect]
     Active Substance: DEXAMETHASONE
     Indication: PRODUCT USED FOR UNKNOWN INDICATION
     Dosage: UNK
     Route: 065

REACTIONS (3)
  - Multiple organ dysfunction syndrome [Fatal]
  - Pneumothorax [None]
  - Immunosuppression [Unknown]
